FAERS Safety Report 13843835 (Version 4)
Quarter: 2017Q4

REPORT INFORMATION
  Report Type: Spontaneous
  Country: DE (occurrence: DE)
  Receive Date: 20170808
  Receipt Date: 20171013
  Transmission Date: 20180320
  Serious: Yes (Other)
  Sender: FDA-Public Use
  Company Number: PHHY2017DE116354

PATIENT
  Sex: Female
  Weight: 82 kg

DRUGS (7)
  1. TRILEPTAL [Suspect]
     Active Substance: OXCARBAZEPINE
     Dosage: 600 MG, QD
     Route: 048
  2. TRILEPTAL [Suspect]
     Active Substance: OXCARBAZEPINE
     Indication: LENNOX-GASTAUT SYNDROME
     Dosage: 150 MG, UNK
     Route: 065
  3. ORFIRIL [Concomitant]
     Active Substance: VALPROATE SODIUM
     Dosage: 600 MG, QD
     Route: 048
  4. TRILEPTAL [Suspect]
     Active Substance: OXCARBAZEPINE
     Dosage: UNK
     Route: 065
  5. ORFIRIL [Concomitant]
     Active Substance: VALPROATE SODIUM
     Indication: LENNOX-GASTAUT SYNDROME
     Dosage: 300 MG, QD
     Route: 048
  6. TRILEPTAL [Suspect]
     Active Substance: OXCARBAZEPINE
     Dosage: 150 MG, QD
     Route: 048
     Dates: start: 20170810, end: 20170914
  7. TRILEPTAL [Suspect]
     Active Substance: OXCARBAZEPINE
     Dosage: UNK
     Route: 065

REACTIONS (10)
  - Amnesia [Recovered/Resolved]
  - Hallucination [Recovered/Resolved]
  - Pallor [Recovered/Resolved]
  - Hypotonia [Recovered/Resolved]
  - Tremor [Recovered/Resolved]
  - Visual impairment [Recovered/Resolved]
  - Seizure [Recovered/Resolved]
  - Eye movement disorder [Recovered/Resolved]
  - Inappropriate affect [Recovered/Resolved]
  - Product use in unapproved indication [Unknown]

NARRATIVE: CASE EVENT DATE: 201708
